FAERS Safety Report 26050287 (Version 1)
Quarter: 2025Q4

REPORT INFORMATION
  Report Type: Spontaneous
  Country: US (occurrence: US)
  Receive Date: 20251116
  Receipt Date: 20251116
  Transmission Date: 20260117
  Serious: No
  Sender: MERCK SHARP & DOHME LLC
  Company Number: US-009507513-2349472

PATIENT
  Sex: Female
  Weight: 49 kg

DRUGS (33)
  1. WINREVAIR [Suspect]
     Active Substance: SOTATERCEPT-CSRK
  2. WINREVAIR [Suspect]
     Active Substance: SOTATERCEPT-CSRK
  3. WINREVAIR [Suspect]
     Active Substance: SOTATERCEPT-CSRK
  4. WINREVAIR [Suspect]
     Active Substance: SOTATERCEPT-CSRK
  5. REMODULIN [Suspect]
     Active Substance: TREPROSTINIL
     Indication: Pulmonary arterial hypertension
     Dosage: CONCENTRATION 5 MG/ML; SELF-FILL WITH 2.2 ML PER CASSETTE; RATE 24MCL PER HOUR
     Route: 058
     Dates: start: 20250210
  6. THIAMINE HYDROCHLORIDE [Concomitant]
     Active Substance: THIAMINE HYDROCHLORIDE
  7. POTASSIUM CHLORIDE [Concomitant]
     Active Substance: POTASSIUM CHLORIDE
  8. FOLIC ACID [Concomitant]
     Active Substance: FOLIC ACID
  9. MACITENTAN\TADALAFIL [Concomitant]
     Active Substance: MACITENTAN\TADALAFIL
  10. FUROSEMIDE [Concomitant]
     Active Substance: FUROSEMIDE
  11. FAMOTIDINE [Concomitant]
     Active Substance: FAMOTIDINE
  12. KETAMINE HYDROCHLORIDE [Concomitant]
     Active Substance: KETAMINE HYDROCHLORIDE
  13. LECITHIN [Concomitant]
     Active Substance: LECITHIN
  14. SUCRALFATE [Concomitant]
     Active Substance: SUCRALFATE
  15. ELIQUIS [Concomitant]
     Active Substance: APIXABAN
  16. Jadenu sprinkle [Concomitant]
  17. DIPHENHYDRAMINE HYDROCHLORIDE [Concomitant]
     Active Substance: DIPHENHYDRAMINE HYDROCHLORIDE
  18. ALBUTEROL SULFATE [Concomitant]
     Active Substance: ALBUTEROL SULFATE
  19. ALDACTONE [Concomitant]
     Active Substance: SPIRONOLACTONE
  20. PREVACID [Concomitant]
     Active Substance: LANSOPRAZOLE
  21. MAGNESIUM [Concomitant]
     Active Substance: MAGNESIUM
  22. OMEPRAZOLE MAGNESIUM [Concomitant]
     Active Substance: OMEPRAZOLE MAGNESIUM
  23. CLONIDINE [Concomitant]
     Active Substance: CLONIDINE
  24. KETOPROFEN [Concomitant]
     Active Substance: KETOPROFEN
  25. OXYGEN [Concomitant]
     Active Substance: OXYGEN
  26. LIDOCAINE HYDROCHLORIDE [Concomitant]
     Active Substance: LIDOCAINE HYDROCHLORIDE
  27. CETIRIZINE HCL [Concomitant]
     Active Substance: CETIRIZINE HYDROCHLORIDE
  28. DIGOXIN [Concomitant]
     Active Substance: DIGOXIN
  29. AMITRIPTYLINE HYDROCHLORIDE [Concomitant]
     Active Substance: AMITRIPTYLINE HYDROCHLORIDE
  30. GABAPENTIN [Concomitant]
     Active Substance: GABAPENTIN
  31. POLOXAMER [Concomitant]
     Active Substance: POLOXAMER
  32. LOPERAMIDE [Concomitant]
     Active Substance: LOPERAMIDE
  33. ONDANSETRON HYDROCHLORIDE [Concomitant]
     Active Substance: ONDANSETRON HYDROCHLORIDE

REACTIONS (1)
  - Epistaxis [Unknown]

NARRATIVE: CASE EVENT DATE: 20250101
